FAERS Safety Report 18563392 (Version 2)
Quarter: 2021Q1

REPORT INFORMATION
  Report Type: Other
  Country: CA (occurrence: CA)
  Receive Date: 20201201
  Receipt Date: 20210303
  Transmission Date: 20210419
  Serious: Yes (Other)
  Sender: FDA-Public Use
  Company Number: CA-ROCHE-2723399

PATIENT
  Sex: Female

DRUGS (21)
  1. RITUXAN [Suspect]
     Active Substance: RITUXIMAB
     Indication: SYSTEMIC LUPUS ERYTHEMATOSUS
     Route: 042
     Dates: start: 201606, end: 201903
  2. QUETIAPINE. [Concomitant]
     Active Substance: QUETIAPINE
  3. CANDESARTAN. [Concomitant]
     Active Substance: CANDESARTAN
  4. FUROSEMIDE. [Concomitant]
     Active Substance: FUROSEMIDE
  5. CALCIUM [Concomitant]
     Active Substance: CALCIUM
  6. TYLENOL [Concomitant]
     Active Substance: ACETAMINOPHEN
     Route: 048
     Dates: start: 20190910
  7. RITUXAN [Suspect]
     Active Substance: RITUXIMAB
     Indication: POLYARTHRITIS
     Dosage: DAY 1, DAY 15
     Route: 042
     Dates: start: 20190910
  8. MIRTAZAPINE. [Concomitant]
     Active Substance: MIRTAZAPINE
  9. PLAQUENIL [Concomitant]
     Active Substance: HYDROXYCHLOROQUINE SULFATE
  10. SOLU?MEDROL [Concomitant]
     Active Substance: METHYLPREDNISOLONE SODIUM SUCCINATE
     Dates: start: 20190910
  11. PANTOLOC [Concomitant]
     Active Substance: PANTOPRAZOLE SODIUM
  12. XARELTO [Concomitant]
     Active Substance: RIVAROXABAN
  13. FERROUS SULFATE. [Concomitant]
     Active Substance: FERROUS SULFATE
  14. FOLIC ACID. [Concomitant]
     Active Substance: FOLIC ACID
  15. PREDNISONE. [Concomitant]
     Active Substance: PREDNISONE
  16. GRAVOL [Concomitant]
     Active Substance: DIMENHYDRINATE
     Route: 048
     Dates: start: 20200608, end: 20200608
  17. VITAMIN D [ERGOCALCIFEROL] [Concomitant]
     Active Substance: ERGOCALCIFEROL
  18. ZOPICLONE [Concomitant]
     Active Substance: ZOPICLONE
  19. BENADRYL [Concomitant]
     Active Substance: DIPHENHYDRAMINE HYDROCHLORIDE
     Route: 048
     Dates: start: 20190910
  20. BISOPROLOL [Concomitant]
     Active Substance: BISOPROLOL
  21. METHOTREXATE. [Concomitant]
     Active Substance: METHOTREXATE

REACTIONS (3)
  - Off label use [Unknown]
  - Abscess limb [Not Recovered/Not Resolved]
  - Intentional product use issue [Unknown]
